FAERS Safety Report 9377971 (Version 1)
Quarter: 2013Q3

REPORT INFORMATION
  Report Type: Spontaneous
  Country: VE (occurrence: VE)
  Receive Date: 20130701
  Receipt Date: 20130701
  Transmission Date: 20140515
  Serious: Yes (Death, Other)
  Sender: FDA-Public Use
  Company Number: VE-PFIZER INC-2013193009

PATIENT
  Age: 68 Year
  Sex: Female

DRUGS (1)
  1. LIPITOR [Suspect]
     Dosage: 80 MG, UNK

REACTIONS (2)
  - Post procedural infection [Fatal]
  - Cardiac disorder [Unknown]
